FAERS Safety Report 25901548 (Version 1)
Quarter: 2025Q4

REPORT INFORMATION
  Report Type: Report from Study
  Country: US (occurrence: US)
  Receive Date: 20251009
  Receipt Date: 20251009
  Transmission Date: 20260117
  Serious: Yes (Other)
  Sender: ABBVIE
  Company Number: US-ABBVIE-6411978

PATIENT
  Age: 52 Year
  Sex: Female

DRUGS (1)
  1. RINVOQ [Suspect]
     Active Substance: UPADACITINIB
     Indication: Rheumatoid arthritis
     Dosage: 15 MG
     Route: 048
     Dates: start: 20250611, end: 20251002

REACTIONS (6)
  - Surgery [Unknown]
  - Peripheral swelling [Recovered/Resolved]
  - Abdominal distension [Recovered/Resolved]
  - Peripheral swelling [Recovering/Resolving]
  - Abdominal distension [Recovered/Resolved]
  - Cyanosis [Unknown]

NARRATIVE: CASE EVENT DATE: 20250101
